FAERS Safety Report 9231512 (Version 2)
Quarter: 2013Q3

REPORT INFORMATION
  Report Type: Spontaneous
  Country: BR (occurrence: BR)
  Receive Date: 20130415
  Receipt Date: 20130708
  Transmission Date: 20140515
  Serious: Yes (Other)
  Sender: FDA-Public Use
  Company Number: PHHY2013BR035931

PATIENT
  Sex: Female
  Weight: 70 kg

DRUGS (3)
  1. RITALINA [Suspect]
     Indication: ATTENTION DEFICIT/HYPERACTIVITY DISORDER
     Dosage: UNK UKN, UNK
     Route: 048
  2. RITALINA [Suspect]
     Dosage: UNK UKN, UNK
     Route: 048
  3. LEXAPRO [Concomitant]
     Indication: PANIC DISORDER
     Dosage: 1 DF, QD

REACTIONS (6)
  - Memory impairment [Recovered/Resolved]
  - Withdrawal syndrome [Unknown]
  - Drug dependence [Unknown]
  - Nervousness [Recovered/Resolved]
  - Sluggishness [Recovered/Resolved]
  - Attention deficit/hyperactivity disorder [Unknown]
